FAERS Safety Report 13991405 (Version 1)
Quarter: 2017Q3

REPORT INFORMATION
  Report Type: Spontaneous
  Country: US (occurrence: US)
  Receive Date: 20170920
  Receipt Date: 20170920
  Transmission Date: 20171128
  Serious: Yes (Hospitalization)
  Sender: FDA-Public Use
  Company Number: US-PROCTER+GAMBLE-GS17099979

PATIENT

DRUGS (7)
  1. NYQUIL NOS [Suspect]
     Active Substance: ACETAMINOPHEN\CHLORPHENIRAMINE\DEXTROMETHORPHAN\DIPHENHYDRAMINE\DOXYLAMINE\PSEUDOEPHEDRINE
     Indication: COUGH
  2. VICKS DAYQUIL COUGH [Suspect]
     Active Substance: DEXTROMETHORPHAN HYDROBROMIDE
     Indication: COUGH
  3. NYQUIL NOS [Suspect]
     Active Substance: ACETAMINOPHEN\CHLORPHENIRAMINE\DEXTROMETHORPHAN\DIPHENHYDRAMINE\DOXYLAMINE\PSEUDOEPHEDRINE
     Indication: NASOPHARYNGITIS
  4. VICKS DAYQUIL COUGH [Suspect]
     Active Substance: DEXTROMETHORPHAN HYDROBROMIDE
     Indication: NASOPHARYNGITIS
  5. PAIN PILLS [Concomitant]
     Active Substance: UNSPECIFIED INGREDIENT
     Indication: BACK PAIN
  6. NYQUIL NOS [Suspect]
     Active Substance: ACETAMINOPHEN\CHLORPHENIRAMINE\DEXTROMETHORPHAN\DIPHENHYDRAMINE\DOXYLAMINE\PSEUDOEPHEDRINE
     Indication: MALAISE
     Dosage: WOULD TAKE SWIG FROM THE BOTTLE RATHER THAN USE THE DOSING CUP
     Route: 048
  7. VICKS DAYQUIL COUGH [Suspect]
     Active Substance: DEXTROMETHORPHAN HYDROBROMIDE
     Indication: MALAISE
     Dosage: 1 UNK, UNK
     Route: 048

REACTIONS (4)
  - Accidental overdose [Unknown]
  - Incorrect dose administered [Unknown]
  - Unresponsive to stimuli [Recovered/Resolved]
  - Toxicologic test abnormal [Unknown]

NARRATIVE: CASE EVENT DATE: 201701
